FAERS Safety Report 26206539 (Version 1)
Quarter: 2025Q4

REPORT INFORMATION
  Report Type: Spontaneous
  Country: EU (occurrence: EU)
  Receive Date: 20251229
  Receipt Date: 20251229
  Transmission Date: 20260117
  Serious: Yes (Other)
  Sender: VELOXIS PHARMACEUTICALS
  Company Number: EU-ROCHE-2530282

PATIENT
  Age: 37 Year
  Sex: Male

DRUGS (7)
  1. TACROLIMUS [Suspect]
     Active Substance: TACROLIMUS
     Indication: Renal transplant
     Dosage: UNK
     Route: 065
  2. CYCLOPHOSPHAMIDE [Suspect]
     Active Substance: CYCLOPHOSPHAMIDE
     Indication: Renal transplant
     Dosage: 1.5 MG/KG, QD
  3. MYCOPHENOLATE MOFETIL [Suspect]
     Active Substance: MYCOPHENOLATE MOFETIL
     Indication: Renal transplant
     Dosage: UNK
     Route: 065
  4. PREDNISONE [Suspect]
     Active Substance: PREDNISONE
     Indication: Renal transplant
     Dosage: UNK
     Route: 065
  5. METHYLPREDNISOLONE [Suspect]
     Active Substance: METHYLPREDNISOLONE
     Indication: Renal transplant
     Dosage: 10 MG/KG, QD (FOR 3 DAYS)
  6. RITUXIMAB [Concomitant]
     Active Substance: RITUXIMAB
     Indication: Focal segmental glomerulosclerosis
     Dosage: 375 MG/M2
  7. IRBESARTAN [Concomitant]
     Active Substance: IRBESARTAN
     Indication: Product used for unknown indication
     Dosage: 150, STOPPED AT 9  MONTHS
     Route: 065

REACTIONS (2)
  - Focal segmental glomerulosclerosis [Unknown]
  - Cytomegalovirus infection reactivation [Recovered/Resolved]
